FAERS Safety Report 10402008 (Version 1)
Quarter: 2014Q3

REPORT INFORMATION
  Report Type: Spontaneous
  Country: US (occurrence: US)
  Receive Date: 20140822
  Receipt Date: 20140822
  Transmission Date: 20150326
  Serious: Yes (Other)
  Sender: FDA-Public Use
  Company Number: US-SA-2014SA111632

PATIENT
  Age: 49 Year
  Sex: Female

DRUGS (4)
  1. SOLOSTAR [Concomitant]
     Active Substance: DEVICE
     Indication: TYPE 2 DIABETES MELLITUS
     Dates: start: 2006
  2. LANTUS SOLOSTAR [Suspect]
     Active Substance: INSULIN GLARGINE
     Indication: TYPE 2 DIABETES MELLITUS
     Dosage: DOSE: FROM 20 U TO 70 U THEN BACK TO 20 U
     Route: 065
     Dates: start: 2006
  3. LANTUS [Suspect]
     Active Substance: INSULIN GLARGINE
     Indication: TYPE 2 DIABETES MELLITUS
     Route: 065
  4. HUMALOG [Concomitant]
     Active Substance: INSULIN LISPRO

REACTIONS (8)
  - Drug administration error [Unknown]
  - Vision blurred [Unknown]
  - Gait disturbance [Unknown]
  - Fall [Unknown]
  - Road traffic accident [Unknown]
  - Ankle fracture [Unknown]
  - Limb injury [Unknown]
  - Pain in extremity [Unknown]

NARRATIVE: CASE EVENT DATE: 20120129
